FAERS Safety Report 7297074-X (Version None)
Quarter: 2011Q1

REPORT INFORMATION
  Report Type: 
  Country: None (occurrence: None)
  Receive Date: 20110216
  Receipt Date: 20110207
  Transmission Date: 20110831
  Serious: Yes (Other)
  Sender: FDA-Public Use
  Company Number: US-PURDUE-USA-2011-0063581

PATIENT
  Sex: Female

DRUGS (1)
  1. OXYCONTIN [Suspect]
     Indication: PRODUCT USED FOR UNKNOWN INDICATION
     Dosage: 10 MG, UNK

REACTIONS (7)
  - ABDOMINAL PAIN UPPER [None]
  - SUICIDAL IDEATION [None]
  - MEDICATION RESIDUE [None]
  - BOWEL MOVEMENT IRREGULARITY [None]
  - APHAGIA [None]
  - PAIN [None]
  - DYSPEPSIA [None]
